FAERS Safety Report 7272768-0 (Version None)
Quarter: 2011Q1

REPORT INFORMATION
  Report Type: 
  Country: None (occurrence: None)
  Receive Date: 20110203
  Receipt Date: 20110126
  Transmission Date: 20110831
  Serious: Yes (Other)
  Sender: FDA-Public Use
  Company Number: GB-ROCHE-755942

PATIENT
  Sex: Male

DRUGS (2)
  1. MIRCERA [Suspect]
     Route: 058
     Dates: start: 20101112, end: 20101114
  2. SODIUM BICARBONATE [Concomitant]
     Route: 048
     Dates: start: 20101112, end: 20101113

REACTIONS (3)
  - ECZEMA [None]
  - RASH PAPULAR [None]
  - RASH GENERALISED [None]
